FAERS Safety Report 4960249-6 (Version None)
Quarter: 2006Q1

REPORT INFORMATION
  Report Type: 
  Country: None (occurrence: None)
  Receive Date: 20060328
  Receipt Date: 20060317
  Transmission Date: 20060701
  Serious: Yes (Other)
  Sender: FDA-Public Use
  Company Number: 2006039462

PATIENT
  Sex: Female

DRUGS (5)
  1. CELEBREX [Suspect]
     Indication: PAIN
     Dosage: 200 MG (200 MG, PRN INTERVAL: EVERY DAY)
     Dates: start: 20020101
  2. NORVASC [Concomitant]
  3. SPIRONOLACTONE [Concomitant]
  4. PROTONIX [Concomitant]
  5. SYNTHROID [Concomitant]

REACTIONS (6)
  - ARTHRALGIA [None]
  - DYSSOMNIA [None]
  - MUSCLE SPASMS [None]
  - PAIN [None]
  - PAIN IN EXTREMITY [None]
  - THYROID NEOPLASM [None]
